FAERS Safety Report 4793689-9 (Version None)
Quarter: 2005Q4

REPORT INFORMATION
  Report Type: 
  Country: None (occurrence: None)
  Receive Date: 20051011
  Receipt Date: 20051003
  Transmission Date: 20060501
  Serious: Yes (Death, Hospitalization)
  Sender: FDA-Public Use
  Company Number: US-JNJFOC-20050605079

PATIENT
  Sex: Male

DRUGS (11)
  1. EXTRA STRENGTH TYLENOL [Suspect]
     Indication: PAIN
     Route: 048
  2. EXTRA STRENGTH TYLENOL [Suspect]
     Indication: INSOMNIA
     Route: 048
  3. EXTRA STRENGTH TYLENOL [Suspect]
     Indication: ANXIETY
     Route: 048
  4. COUMADIN [Concomitant]
  5. ATENOLOL [Concomitant]
  6. POTASSIUM CHLORIDE [Concomitant]
  7. FUROSEMIDE [Concomitant]
  8. FUROSEMIDE [Concomitant]
  9. ZOCOR [Concomitant]
  10. MONOPRIL [Concomitant]
  11. SINGULAIR [Concomitant]

REACTIONS (8)
  - ATRIAL FIBRILLATION [None]
  - CARDIAC FAILURE CONGESTIVE [None]
  - CORONARY ARTERY DISEASE [None]
  - DELIRIUM TREMENS [None]
  - GASTRIC ULCER PERFORATION [None]
  - HEART RATE IRREGULAR [None]
  - RALES [None]
  - RHONCHI [None]
